FAERS Safety Report 6036444-4 (Version None)
Quarter: 2009Q1

REPORT INFORMATION
  Report Type: 
  Country: None (occurrence: None)
  Receive Date: 20090112
  Receipt Date: 20090106
  Transmission Date: 20090719
  Serious: Yes (Hospitalization)
  Sender: FDA-Public Use
  Company Number: TPA2009A00015

PATIENT
  Age: 50 Year
  Sex: Female

DRUGS (3)
  1. PIOGLITAZONE HCL [Suspect]
     Indication: TYPE 2 DIABETES MELLITUS
     Dosage: 30 MG, 1 IN 1 D, PER ORAL
     Route: 048
     Dates: start: 20081126, end: 20081223
  2. SYNTHROID [Concomitant]
  3. METFORMIN HCL [Concomitant]

REACTIONS (7)
  - ADENOCARCINOMA PANCREAS [None]
  - ANAEMIA [None]
  - BILE DUCT STONE [None]
  - CHOLELITHIASIS [None]
  - DUODENAL ULCER [None]
  - MENORRHAGIA [None]
  - PANCREATIC MASS [None]
